FAERS Safety Report 8623005 (Version 3)
Quarter: 2014Q1

REPORT INFORMATION
  Report Type: Spontaneous
  Country: CZ (occurrence: CZ)
  Receive Date: 20120619
  Receipt Date: 20140224
  Transmission Date: 20141002
  Serious: Yes (Hospitalization, Other)
  Sender: FDA-Public Use
  Company Number: CZ-TEVA-343725ISR

PATIENT
  Age: 42 Year
  Sex: Female

DRUGS (7)
  1. PACLITAXEL [Suspect]
     Indication: BREAST CANCER
     Dosage: 80 MG/M2 DAILY; ON DAY 1 OVER 1 HOUR FOR 12 WEEKS
     Route: 041
  2. DOXORUBICIN [Concomitant]
     Indication: BREAST CANCER
     Dosage: 4 CYCLES
  3. CYCLOPHOSPHAMIDE [Concomitant]
     Indication: BREAST CANCER
     Dosage: 600MG/M2 ON DAY 1 EVERY 3 WEEKS
     Route: 042
  4. ONDANSETRON [Concomitant]
     Route: 042
  5. DEXAMETHASON [Concomitant]
     Route: 042
  6. RANITIDINE [Concomitant]
     Route: 042
  7. DITHIADENOXIDE [Concomitant]
     Route: 042

REACTIONS (3)
  - Hallucination [Unknown]
  - Suicidal ideation [Unknown]
  - Febrile neutropenia [Unknown]
